FAERS Safety Report 25602914 (Version 1)
Quarter: 2025Q3

REPORT INFORMATION
  Report Type: Spontaneous
  Country: AU (occurrence: AU)
  Receive Date: 20250724
  Receipt Date: 20250724
  Transmission Date: 20251021
  Serious: Yes (Other)
  Sender: GILEAD
  Company Number: AU-GILEAD-2025-0706697

PATIENT
  Age: 51 Year
  Sex: Male

DRUGS (13)
  1. DESCOVY [Suspect]
     Active Substance: EMTRICITABINE\TENOFOVIR ALAFENAMIDE FUMARATE
     Indication: Prophylaxis against HIV infection
     Dosage: 25/200 TABLETS -1 TABLET IN THE MORNING.
     Route: 065
     Dates: start: 20220804
  2. TRUVADA [Suspect]
     Active Substance: EMTRICITABINE\TENOFOVIR DISOPROXIL FUMARATE
     Indication: Prophylaxis against HIV infection
     Route: 065
  3. ALLOPURINOL [Concomitant]
     Active Substance: ALLOPURINOL
     Dosage: 100MG TABLET-1 TABLET DAILY.
  4. ASPIRIN [Concomitant]
     Active Substance: ASPIRIN
  5. CLONIDINE [Concomitant]
     Active Substance: CLONIDINE
  6. CODEINE [Concomitant]
     Active Substance: CODEINE
  7. ESOMEPRAZOLE [Concomitant]
     Active Substance: ESOMEPRAZOLE
  8. HYDROCHLOROTHIAZIDE [Concomitant]
     Active Substance: HYDROCHLOROTHIAZIDE
  9. IRBESARTAN [Concomitant]
     Active Substance: IRBESARTAN
     Dosage: 75MG TABLET-1 TABLET DAILY
  10. PRISTIQ EXTENDED-RELEASE [Concomitant]
     Active Substance: DESVENLAFAXINE SUCCINATE
     Dosage: 50MG TABLET -1 TABLET DAILY
  11. SILODOSIN [Concomitant]
     Active Substance: SILODOSIN
     Dosage: 4MG CAPSULES -1 CAPSULE DAILY
  12. SUSTANON [TESTOSTERONE CAPRINOYLACETATE;TESTOSTERONE ISOCAPROATE;TESTO [Concomitant]
  13. TADALAFIL [Concomitant]
     Active Substance: TADALAFIL

REACTIONS (9)
  - Renal impairment [Unknown]
  - Chronic kidney disease [Unknown]
  - Vitamin D deficiency [Unknown]
  - Gastrooesophageal reflux disease [Unknown]
  - Hyperhidrosis [Unknown]
  - Large intestine polyp [Unknown]
  - Aerophobia [Unknown]
  - Hepatic steatosis [Unknown]
  - Attention deficit hyperactivity disorder [Unknown]

NARRATIVE: CASE EVENT DATE: 20220819
